FAERS Safety Report 25245504 (Version 1)
Quarter: 2025Q2

REPORT INFORMATION
  Report Type: Spontaneous
  Country: GB (occurrence: GB)
  Receive Date: 20250428
  Receipt Date: 20250428
  Transmission Date: 20250717
  Serious: Yes (Disabling, Other)
  Sender: MYLAN
  Company Number: None

PATIENT
  Age: 83 Year
  Sex: Female
  Weight: 50 kg

DRUGS (24)
  1. DOXAZOSIN [Suspect]
     Active Substance: DOXAZOSIN MESYLATE
     Indication: Hypertension
  2. DOXAZOSIN [Suspect]
     Active Substance: DOXAZOSIN MESYLATE
     Route: 065
  3. DOXAZOSIN [Suspect]
     Active Substance: DOXAZOSIN MESYLATE
     Route: 065
  4. DOXAZOSIN [Suspect]
     Active Substance: DOXAZOSIN MESYLATE
  5. EDOXABAN [Concomitant]
     Active Substance: EDOXABAN
     Indication: Hypertension
  6. EDOXABAN [Concomitant]
     Active Substance: EDOXABAN
     Route: 065
  7. EDOXABAN [Concomitant]
     Active Substance: EDOXABAN
     Route: 065
  8. EDOXABAN [Concomitant]
     Active Substance: EDOXABAN
  9. AMLODIPINE [Concomitant]
     Active Substance: AMLODIPINE BESYLATE
     Indication: Hypertension
  10. AMLODIPINE [Concomitant]
     Active Substance: AMLODIPINE BESYLATE
     Route: 065
  11. AMLODIPINE [Concomitant]
     Active Substance: AMLODIPINE BESYLATE
     Route: 065
  12. AMLODIPINE [Concomitant]
     Active Substance: AMLODIPINE BESYLATE
  13. RAMIPRIL [Concomitant]
     Active Substance: RAMIPRIL
     Indication: Hypertension
  14. RAMIPRIL [Concomitant]
     Active Substance: RAMIPRIL
     Route: 065
  15. RAMIPRIL [Concomitant]
     Active Substance: RAMIPRIL
     Route: 065
  16. RAMIPRIL [Concomitant]
     Active Substance: RAMIPRIL
  17. SPIRONOLACTONE [Concomitant]
     Active Substance: SPIRONOLACTONE
     Indication: Hypertension
  18. SPIRONOLACTONE [Concomitant]
     Active Substance: SPIRONOLACTONE
     Route: 065
  19. SPIRONOLACTONE [Concomitant]
     Active Substance: SPIRONOLACTONE
     Route: 065
  20. SPIRONOLACTONE [Concomitant]
     Active Substance: SPIRONOLACTONE
  21. CHOLECALCIFEROL [Concomitant]
     Active Substance: CHOLECALCIFEROL
     Indication: Osteoporosis
  22. CHOLECALCIFEROL [Concomitant]
     Active Substance: CHOLECALCIFEROL
     Route: 065
  23. CHOLECALCIFEROL [Concomitant]
     Active Substance: CHOLECALCIFEROL
     Route: 065
  24. CHOLECALCIFEROL [Concomitant]
     Active Substance: CHOLECALCIFEROL

REACTIONS (5)
  - Disorientation [Not Recovered/Not Resolved]
  - Urinary incontinence [Not Recovered/Not Resolved]
  - Fatigue [Unknown]
  - Dyspepsia [Unknown]
  - Dizziness [Unknown]

NARRATIVE: CASE EVENT DATE: 20250323
